FAERS Safety Report 4942767-X (Version None)
Quarter: 2006Q1

REPORT INFORMATION
  Report Type: 
  Country: None (occurrence: None)
  Receive Date: 20060309
  Receipt Date: 20060228
  Transmission Date: 20060701
  Serious: Yes (Other)
  Sender: FDA-Public Use
  Company Number: HQWYE073901MAR06

PATIENT
  Sex: Female

DRUGS (5)
  1. PROPRANOLOL HCL [Suspect]
     Indication: MIGRAINE WITH AURA
     Dosage: 40 MG 2X PER 1 DAY, ORAL
     Route: 048
     Dates: start: 20060101, end: 20060220
  2. LUTENYL (NOMEGESTROL ACETATE) [Concomitant]
  3. TRANXENE [Concomitant]
  4. EXACYL (TRANEXAMIC ACID) [Concomitant]
  5. KETOPROFEN [Concomitant]

REACTIONS (2)
  - CONDITION AGGRAVATED [None]
  - MIGRAINE WITH AURA [None]
